FAERS Safety Report 23226401 (Version 2)
Quarter: 2023Q4

REPORT INFORMATION
  Report Type: Spontaneous
  Country: SE (occurrence: SE)
  Receive Date: 20231124
  Receipt Date: 20231211
  Transmission Date: 20240110
  Serious: Yes (Death, Other)
  Sender: FDA-Public Use
  Company Number: None

PATIENT
  Age: 28 Year
  Sex: Male

DRUGS (9)
  1. RISPERDAL [Suspect]
     Active Substance: RISPERIDONE
     Indication: Aggression
     Dosage: 2+1,75
     Route: 048
     Dates: start: 2015
  2. OLANZAPINE [Suspect]
     Active Substance: OLANZAPINE
     Indication: Psychotic disorder
     Route: 048
     Dates: start: 20200924
  3. DESLORATADINE [Suspect]
     Active Substance: DESLORATADINE
     Indication: Hypersensitivity
     Dosage: 1 VB
     Route: 048
  4. CLOMETHIAZOLE [Suspect]
     Active Substance: CLOMETHIAZOLE
     Indication: Aggression
     Dosage: VB
     Route: 048
     Dates: start: 20160418
  5. CLOMETHIAZOLE [Suspect]
     Active Substance: CLOMETHIAZOLE
     Indication: Anxiety
  6. VENLAFAXINE HYDROCHLORIDE [Suspect]
     Active Substance: VENLAFAXINE HYDROCHLORIDE
     Indication: Anxiety
     Dosage: 1+0+0+0
     Route: 048
     Dates: start: 20150507
  7. ASACOL [Suspect]
     Active Substance: MESALAMINE
     Indication: Proctitis
     Dosage: 2 PER VECKA
     Route: 054
  8. MOVICOL [Suspect]
     Active Substance: POLYETHYLENE GLYCOL 3350\POTASSIUM CHLORIDE\SODIUM BICARBONATE\SODIUM CHLORIDE
     Indication: Product used for unknown indication
     Dosage: 1
     Route: 048
  9. FLUCLOXACILLIN [Suspect]
     Active Substance: FLUCLOXACILLIN
     Indication: Wound infection
     Route: 048
     Dates: start: 20230715

REACTIONS (5)
  - Cardiomyopathy [Fatal]
  - Polydipsia [Fatal]
  - Polyuria [Fatal]
  - Urinary retention [Unknown]
  - Enuresis [Unknown]

NARRATIVE: CASE EVENT DATE: 20210101
